FAERS Safety Report 8777958 (Version 1)
Quarter: 2012Q4

REPORT INFORMATION
  Report Type: 
  Country: GB (occurrence: GB)
  Receive Date: 20120912
  Receipt Date: 20120912
  Transmission Date: 20130627
  Serious: Yes (Disabling)
  Sender: FDA-Public Use
  Company Number: PHHY2012GB078456

PATIENT
  Age: 36 Year

DRUGS (2)
  1. METRONIDAZOLE [Suspect]
     Indication: DENTAL CARE
     Route: 048
  2. BECONASE AQUEOUS [Concomitant]
     Dosage: 2 DF, QD

REACTIONS (4)
  - Optic neuritis [Not Recovered/Not Resolved]
  - Tinnitus [Not Recovered/Not Resolved]
  - Psychotic disorder [Recovered/Resolved]
  - Mental disorder [Recovered/Resolved]
